FAERS Safety Report 10328513 (Version 2)
Quarter: 2014Q3

REPORT INFORMATION
  Report Type: Spontaneous
  Country: US (occurrence: US)
  Receive Date: 20140721
  Receipt Date: 20140911
  Transmission Date: 20150326
  Serious: Yes (Other)
  Sender: FDA-Public Use
  Company Number: US-AMGEN-USASP2014053101

PATIENT
  Age: 89 Year
  Sex: Female

DRUGS (2)
  1. PROLIA [Suspect]
     Active Substance: DENOSUMAB
     Indication: OSTEOPOROSIS
     Dosage: 60 MG, UNK, ONCE
     Route: 065
     Dates: start: 20130802
  2. VITAMIN B12 [Concomitant]
     Active Substance: CYANOCOBALAMIN
     Dosage: UNK UNK, QMO

REACTIONS (10)
  - Pain in jaw [Recovered/Resolved]
  - Tooth disorder [Unknown]
  - Cystitis [Unknown]
  - Oral discomfort [Unknown]
  - Gingival pain [Unknown]
  - Tongue disorder [Unknown]
  - Hyperaesthesia [Unknown]
  - Speech disorder [Unknown]
  - Oral pain [Unknown]
  - Gingivitis [Unknown]
